FAERS Safety Report 4693016-1 (Version None)
Quarter: 2005Q2

REPORT INFORMATION
  Report Type: 
  Country: None (occurrence: None)
  Receive Date: 20050615
  Receipt Date: 20050601
  Transmission Date: 20051028
  Serious: Yes (Death)
  Sender: FDA-Public Use
  Company Number: SUSI-2005-00451

PATIENT
  Age: 30 Year
  Sex: Male

DRUGS (2)
  1. ADDERALL 10 [Suspect]
     Dosage: 30 MG 1X/DAY; QD
  2. ADDERALL 15 [Suspect]
     Dosage: 90 MG, 1X/DAY; QD

REACTIONS (1)
  - PRESCRIBED OVERDOSE [None]
